FAERS Safety Report 7184759-9 (Version None)
Quarter: 2010Q4

REPORT INFORMATION
  Report Type: 
  Country: None (occurrence: None)
  Receive Date: 20101222
  Receipt Date: 20101220
  Transmission Date: 20110411
  Serious: Yes (Other)
  Sender: FDA-Public Use
  Company Number: US-PFIZER INC-2010176042

PATIENT
  Sex: Male
  Weight: 102 kg

DRUGS (16)
  1. ZOSYN [Suspect]
     Indication: DEVICE RELATED INFECTION
     Dosage: 3.375 G, EVERY 8 HRS
     Route: 042
     Dates: start: 20101207, end: 20101209
  2. ZOSYN [Suspect]
     Indication: PYREXIA
  3. HEPARIN [Concomitant]
     Dosage: UNK
  4. INSULIN [Concomitant]
     Dosage: UNK
  5. LOPERAMIDE [Concomitant]
     Dosage: UNK
  6. LORAZEPAM [Concomitant]
     Dosage: UNK
  7. METRONIDAZOLE [Concomitant]
     Dosage: UNK
  8. VANCOMYCIN [Concomitant]
     Dosage: UNK
  9. VITAMIN K TAB [Concomitant]
     Dosage: UNK
  10. MIDAZOLAM [Concomitant]
     Dosage: UNK
  11. DIVALPROEX SODIUM [Concomitant]
     Dosage: UNK
  12. ONDANSETRON [Concomitant]
     Dosage: UNK
  13. PSYLLIUM [Concomitant]
     Dosage: UNK
  14. ZOLPIDEM [Concomitant]
     Dosage: UNK
  15. TPN [Concomitant]
     Dosage: UNK
  16. ACETAMINOPHEN [Concomitant]
     Dosage: UNK

REACTIONS (3)
  - EOSINOPHILIA [None]
  - PYREXIA [None]
  - RASH [None]
